FAERS Safety Report 8661353 (Version 2)
Quarter: 2013Q1

REPORT INFORMATION
  Report Type: Report from Study
  Country: DE (occurrence: DE)
  Receive Date: 20120712
  Receipt Date: 20130116
  Transmission Date: 20140127
  Serious: Yes (Life-Threatening)
  Sender: FDA-Public Use
  Company Number: DE-BAYER-2012-049978

PATIENT
  Age: 39 None
  Sex: Female
  Weight: 170 kg

DRUGS (1)
  1. BETAFERON [Suspect]
     Indication: MULTIPLE SCLEROSIS RELAPSE
     Dosage: 250 ?G/ML, QOD
     Dates: start: 201112, end: 201206

REACTIONS (2)
  - Weight decreased [Not Recovered/Not Resolved]
  - Gastritis [Unknown]
